FAERS Safety Report 15861726 (Version 9)
Quarter: 2019Q4

REPORT INFORMATION
  Report Type: Spontaneous
  Country: US (occurrence: US)
  Receive Date: 20190124
  Receipt Date: 20191031
  Transmission Date: 20200122
  Serious: No
  Sender: FDA-Public Use
  Company Number: US-PFIZER INC-2019030032

PATIENT
  Age: 72 Year
  Sex: Female
  Weight: 48 kg

DRUGS (14)
  1. FLUTICASONE. [Concomitant]
     Active Substance: FLUTICASONE
     Dosage: UNK UNK, DAILY (50 MCG NASAL SPRAY-ONE SPRAY EACH NOSTRIL DAILY)
  2. PROAIR HFA [Concomitant]
     Active Substance: ALBUTEROL SULFATE
     Indication: WHEEZING
     Dosage: UNK UNK, AS NEEDED,2 PUFF EVERY 6 HRS. AS NEEDED
  3. HYDROXYCHLOROQUINE [Concomitant]
     Active Substance: HYDROXYCHLOROQUINE
     Dosage: 200 MG, DAILY
     Dates: start: 201808
  4. XELJANZ [Suspect]
     Active Substance: TOFACITINIB CITRATE
     Dosage: 5 MG, TWICE A DAY
     Route: 048
     Dates: start: 201812
  5. PROTONIX [OMEPRAZOLE] [Concomitant]
     Active Substance: OMEPRAZOLE
     Dosage: 40 MG, 1X/DAY
  6. ZYRTEC [Concomitant]
     Active Substance: CETIRIZINE HYDROCHLORIDE
     Dosage: 10 MG, 1X/DAY
  7. XELJANZ [Suspect]
     Active Substance: TOFACITINIB CITRATE
     Indication: RHEUMATOID ARTHRITIS
     Dosage: 5 MG, TWICE A DAY
     Route: 048
     Dates: start: 201811, end: 2018
  8. DILTIAZEM. [Concomitant]
     Active Substance: DILTIAZEM
     Dosage: 40 MG, DAILY
  9. PROBIOTIC [BIFIDOBACTERIUM LACTIS] [Concomitant]
     Active Substance: BIFIDOBACTERIUM ANIMALIS LACTIS
     Dosage: 1 DF, ALTERNATE DAY,ONE CAP EVERY OTHER DAY
  10. OSTEUM [Concomitant]
     Dosage: UNK UNK, 2X/DAY
  11. VITAMIN D2 [Concomitant]
     Active Substance: ERGOCALCIFEROL
     Dosage: UNK UNK, WEEKLY
  12. SULFASALAZINE. [Concomitant]
     Active Substance: SULFASALAZINE
     Dosage: 500 MG, DAILY
     Dates: start: 20190813
  13. SINGULAIR [Concomitant]
     Active Substance: MONTELUKAST SODIUM
     Dosage: 10 MG, DAILY
  14. FLOVENT [Concomitant]
     Active Substance: FLUTICASONE PROPIONATE
     Dosage: UNK UNK, DAILY (110 MCG HFA 2 SPRAYS TWICE DAILY)

REACTIONS (14)
  - Ear disorder [Not Recovered/Not Resolved]
  - Upper respiratory tract infection [Recovered/Resolved]
  - Sinusitis [Recovered/Resolved]
  - Drug hypersensitivity [Unknown]
  - Urinary tract infection [Recovered/Resolved]
  - Otitis media [Unknown]
  - Gastrointestinal infection [Unknown]
  - Influenza [Recovered/Resolved]
  - Tinnitus [Recovered/Resolved]
  - Ear swelling [Not Recovered/Not Resolved]
  - Bronchitis [Recovered/Resolved]
  - Ear infection [Recovered/Resolved]
  - Gastroenteritis viral [Recovered/Resolved]
  - Ear discomfort [Not Recovered/Not Resolved]

NARRATIVE: CASE EVENT DATE: 201812
